FAERS Safety Report 11337959 (Version 1)
Quarter: 2015Q3

REPORT INFORMATION
  Report Type: Spontaneous
  Country: US (occurrence: US)
  Receive Date: 20150803
  Receipt Date: 20150803
  Transmission Date: 20151125
  Serious: Yes (Other)
  Sender: FDA-Public Use
  Company Number: US-ELI_LILLY_AND_COMPANY-US201002005297

PATIENT
  Age: 28 Year
  Sex: Male
  Weight: 100.23 kg

DRUGS (3)
  1. ZYPREXA [Suspect]
     Active Substance: OLANZAPINE
     Indication: SCHIZOPHRENIA
     Dosage: 10 MG, UNK
     Dates: start: 20091018
  2. ZYPREXA [Suspect]
     Active Substance: OLANZAPINE
     Dosage: 15 MG, UNK
     Dates: end: 20100310
  3. PAROXETINE [Concomitant]
     Active Substance: PAROXETINE\PAROXETINE HYDROCHLORIDE
     Indication: DEPRESSION
     Dosage: 10 MG, DAILY (1/D)
     Dates: start: 20091202, end: 20100310

REACTIONS (10)
  - Blood triglycerides increased [Unknown]
  - Blood thyroid stimulating hormone increased [Unknown]
  - Low density lipoprotein increased [Unknown]
  - Waist circumference increased [Unknown]
  - Weight increased [Unknown]
  - Very low density lipoprotein increased [Unknown]
  - Bundle branch block [Unknown]
  - Blood cholesterol increased [Unknown]
  - High density lipoprotein decreased [Unknown]
  - Total cholesterol/HDL ratio decreased [Unknown]

NARRATIVE: CASE EVENT DATE: 20091018
